FAERS Safety Report 17410492 (Version 3)
Quarter: 2021Q2

REPORT INFORMATION
  Report Type: Report from Study
  Country: US (occurrence: US)
  Receive Date: 20200212
  Receipt Date: 20210513
  Transmission Date: 20210716
  Serious: Yes (Hospitalization)
  Sender: FDA-Public Use
  Company Number: US-TAKEDA-2020TUS009147

PATIENT
  Sex: Male

DRUGS (1)
  1. BRIGATINIB [Suspect]
     Active Substance: BRIGATINIB
     Indication: LUNG NEOPLASM MALIGNANT
     Dosage: 90 MILLIGRAM, QD
     Route: 048

REACTIONS (6)
  - Off label use [Unknown]
  - Chest pain [Unknown]
  - Hypoacusis [Not Recovered/Not Resolved]
  - Burning sensation [Unknown]
  - Peripheral swelling [Recovered/Resolved]
  - Pain [Unknown]
